FAERS Safety Report 6295450-5 (Version None)
Quarter: 2009Q3

REPORT INFORMATION
  Report Type: 
  Country: None (occurrence: None)
  Receive Date: 20090730
  Receipt Date: 20090723
  Transmission Date: 20100115
  Serious: No
  Sender: FDA-Public Use
  Company Number: 2009-201150-NL

PATIENT
  Age: 38 Year
  Sex: Female

DRUGS (4)
  1. MIRTAZAPINE [Suspect]
     Indication: HISTRIONIC PERSONALITY DISORDER
     Dosage: 30 MG QD, ORAL
     Route: 048
     Dates: start: 20080201, end: 20081001
  2. OXAZEPAM [Suspect]
     Dosage: 15 MG PRN, ORAL
     Route: 048
     Dates: start: 20070101
  3. QUETIAPINE FUMARATE [Suspect]
     Indication: HISTRIONIC PERSONALITY DISORDER
     Dosage: 100 MG ALT, ORAL
     Route: 048
     Dates: start: 20071101
  4. ZOLPIDEM TARTRATE [Suspect]
     Indication: SLEEP DISORDER
     Dosage: 10 MG QD, ORAL
     Route: 048
     Dates: start: 20070101

REACTIONS (3)
  - DRUG EXPOSURE DURING PREGNANCY [None]
  - INTRA-UTERINE DEATH [None]
  - TWIN PREGNANCY [None]
